FAERS Safety Report 6915869-6 (Version None)
Quarter: 2010Q3

REPORT INFORMATION
  Report Type: 
  Country: None (occurrence: None)
  Receive Date: 20100810
  Receipt Date: 20100729
  Transmission Date: 20110219
  Serious: Yes (Disabling)
  Sender: FDA-Public Use
  Company Number: JP-ELI_LILLY_AND_COMPANY-JP201007007389

PATIENT
  Age: 36 Year
  Sex: Female
  Weight: 78.6 kg

DRUGS (56)
  1. PEMETREXED [Suspect]
     Indication: LUNG ADENOCARCINOMA STAGE III
     Dosage: 904 MG, UNK
     Route: 042
     Dates: start: 20091208, end: 20091208
  2. PEMETREXED [Suspect]
     Dosage: 900 MG, UNK
     Route: 042
     Dates: start: 20100105, end: 20100126
  3. PEMETREXED [Suspect]
     Dosage: 894 MG, UNK
     Route: 042
     Dates: start: 20100216, end: 20100216
  4. PEMETREXED [Suspect]
     Dosage: 880 MG, UNK
     Route: 042
     Dates: start: 20100309, end: 20100330
  5. PEMETREXED [Suspect]
     Dosage: 710 MG, UNK
     Route: 042
     Dates: start: 20100427, end: 20100427
  6. PEMETREXED [Suspect]
     Dosage: 720 MG, UNK
     Route: 042
     Dates: start: 20100518
  7. PLATOSIN [Concomitant]
     Indication: LUNG ADENOCARCINOMA STAGE III
     Dosage: 136 MG, UNK
     Route: 042
     Dates: start: 20091208, end: 20091208
  8. PLATOSIN [Concomitant]
     Dosage: 135 MG, UNK
     Route: 042
     Dates: start: 20100105, end: 20100126
  9. PLATOSIN [Concomitant]
     Dosage: 134 MG, UNK
     Route: 042
     Dates: start: 20100216, end: 20100216
  10. PANVITAN [Concomitant]
     Dosage: UNK, DAILY (1/D), 0.5 MG/D AS FOLIC ACID
     Route: 048
     Dates: start: 20091117
  11. METHYCOBAL [Concomitant]
     Dosage: 1 MG, UNK
     Route: 030
     Dates: start: 20091117, end: 20100517
  12. DECADRON [Concomitant]
     Route: 048
     Dates: start: 20091207, end: 20091209
  13. DECADRON [Concomitant]
     Route: 048
     Dates: start: 20100104, end: 20100106
  14. DECADRON [Concomitant]
     Route: 048
     Dates: start: 20100125, end: 20100127
  15. DECADRON [Concomitant]
     Route: 048
     Dates: start: 20100215, end: 20100217
  16. DECADRON [Concomitant]
     Route: 048
     Dates: start: 20100308, end: 20100310
  17. DECADRON [Concomitant]
     Route: 048
     Dates: start: 20100329, end: 20100330
  18. DECADRON [Concomitant]
     Route: 048
     Dates: start: 20100426, end: 20100427
  19. DECADRON [Concomitant]
     Route: 048
     Dates: start: 20100517, end: 20100518
  20. DECADRON [Concomitant]
     Route: 048
     Dates: start: 20100608, end: 20100609
  21. DECADRON /NET/ [Concomitant]
     Route: 042
     Dates: start: 20091207, end: 20091209
  22. DECADRON /NET/ [Concomitant]
     Route: 042
     Dates: start: 20100104, end: 20100106
  23. DECADRON /NET/ [Concomitant]
     Route: 042
     Dates: start: 20100125, end: 20100127
  24. DECADRON /NET/ [Concomitant]
     Route: 042
     Dates: start: 20100215, end: 20100217
  25. DECADRON /NET/ [Concomitant]
     Route: 042
     Dates: start: 20100426, end: 20100427
  26. DECADRON /NET/ [Concomitant]
     Route: 042
     Dates: start: 20100517, end: 20100518
  27. DECADRON /NET/ [Concomitant]
     Route: 042
     Dates: start: 20100608, end: 20100609
  28. GRANISETRON /01178102/ [Concomitant]
     Route: 042
     Dates: start: 20091208, end: 20091208
  29. GRANISETRON /01178102/ [Concomitant]
     Route: 042
     Dates: start: 20100105, end: 20100105
  30. GRANISETRON /01178102/ [Concomitant]
     Route: 042
     Dates: start: 20100126, end: 20100126
  31. GRANISETRON /01178102/ [Concomitant]
     Route: 042
     Dates: start: 20100216, end: 20100216
  32. GRANISETRON /01178102/ [Concomitant]
     Route: 042
     Dates: start: 20100309, end: 20100309
  33. GRANISETRON /01178102/ [Concomitant]
     Route: 042
     Dates: start: 20100330, end: 20100330
  34. GRANISETRON /01178102/ [Concomitant]
     Route: 042
     Dates: start: 20100427, end: 20100427
  35. GRANISETRON /01178102/ [Concomitant]
     Route: 042
     Dates: start: 20100518, end: 20100518
  36. GRANISETRON /01178102/ [Concomitant]
     Route: 042
     Dates: start: 20100609, end: 20100609
  37. MANNITOL [Concomitant]
     Route: 042
     Dates: start: 20091208, end: 20091208
  38. MANNITOL [Concomitant]
     Route: 042
     Dates: start: 20100105, end: 20100105
  39. MANNITOL [Concomitant]
     Route: 042
     Dates: start: 20100126, end: 20100126
  40. MANNITOL [Concomitant]
     Route: 042
     Dates: start: 20100216, end: 20100216
  41. SOL MEDROL [Concomitant]
     Route: 042
     Dates: start: 20091209, end: 20091212
  42. SOL MEDROL [Concomitant]
     Route: 042
     Dates: start: 20100106, end: 20100110
  43. SOL MEDROL [Concomitant]
     Route: 042
     Dates: start: 20100127, end: 20100131
  44. SOL MEDROL [Concomitant]
     Route: 042
     Dates: start: 20100217, end: 20100221
  45. RAMELTEON [Concomitant]
     Route: 048
     Dates: start: 20100308, end: 20100310
  46. RAMELTEON [Concomitant]
     Route: 048
     Dates: start: 20100329, end: 20100402
  47. RAMELTEON [Concomitant]
     Route: 048
     Dates: start: 20100518, end: 20100522
  48. RAMELTEON [Concomitant]
     Route: 048
     Dates: start: 20100609, end: 20100613
  49. EMEND [Concomitant]
     Route: 048
     Dates: start: 20100331, end: 20100402
  50. PRIMPERAN TAB [Concomitant]
     Indication: NAUSEA
     Dosage: UNK, UNK
     Route: 065
     Dates: start: 20091209, end: 20100407
  51. TAKEPRON [Concomitant]
     Indication: PROPHYLAXIS
     Route: 048
     Dates: start: 20091211
  52. CALONAL [Concomitant]
     Indication: CHOLELITHIASIS
     Route: 065
     Dates: start: 20091213, end: 20091222
  53. KENALOG [Concomitant]
     Indication: STOMATITIS
     Route: 002
     Dates: start: 20091213, end: 20091217
  54. GRAN [Concomitant]
     Indication: BONE MARROW FAILURE
     Route: 058
     Dates: start: 20100315
  55. WARFARIN POTASSIUM [Concomitant]
     Indication: FIBRIN D DIMER INCREASED
     Route: 048
     Dates: start: 20100316
  56. LOXOPROFEN SODIUM [Concomitant]
     Indication: CANCER PAIN
     Route: 048
     Dates: start: 20100316, end: 20100606

REACTIONS (1)
  - LIVER DISORDER [None]
